FAERS Safety Report 8020097-X (Version None)
Quarter: 2012Q1

REPORT INFORMATION
  Report Type: 
  Country: None (occurrence: None)
  Receive Date: 20120103
  Receipt Date: 20111229
  Transmission Date: 20120608
  Serious: Yes (Hospitalization, Other)
  Sender: FDA-Public Use
  Company Number: CA-BRISTOL-MYERS SQUIBB COMPANY-15207863

PATIENT
  Age: 70 Year
  Sex: Female
  Weight: 100 kg

DRUGS (16)
  1. CETUXIMAB [Suspect]
     Indication: COLORECTAL CANCER METASTATIC
     Dosage: 840MG:26MAY10 525MG:01JUN10-12JUL10 01JUN10:23NOV11:412MG
     Route: 042
     Dates: start: 20100526, end: 20111123
  2. ACETAMINOPHEN [Concomitant]
     Indication: HEADACHE
     Dates: start: 20100526
  3. CLINDAMYCIN HCL [Concomitant]
     Dates: start: 20100531
  4. DOXYCYCLINE [Concomitant]
     Indication: ACNE
     Route: 048
     Dates: start: 20100601
  5. ASPIRIN [Concomitant]
     Indication: CARDIOVASCULAR EVENT PROPHYLAXIS
     Dosage: MAY08:12JUL10 06OCT10:ONG
     Dates: start: 20080501
  6. SENOKOT [Concomitant]
     Indication: CONSTIPATION
     Dosage: 1 D.F:6-8MG
     Dates: start: 20081201
  7. CODEINE [Concomitant]
     Indication: COUGH
     Dates: start: 20111001
  8. ANUSOL [Concomitant]
     Indication: PROCTALGIA
     Dosage: HS
     Dates: start: 20100621
  9. CLOTRIMAZOLE [Concomitant]
     Indication: VULVOVAGINAL PRURITUS
     Dates: start: 20100709
  10. IMODIUM [Concomitant]
     Indication: DIARRHOEA
     Dates: start: 20080501
  11. EMO-CORT [Concomitant]
     Indication: ACNE
     Dosage: 1 D.F=190 UNITS NOT SPECIFIED
     Dates: start: 20100608
  12. STEMETIL [Concomitant]
     Indication: VOMITING
     Route: 048
     Dates: start: 20100619
  13. POTASSIUM CHLORIDE [Concomitant]
     Indication: DIARRHOEA
     Dates: start: 20090401
  14. BRIVANIB ALANINATE [Suspect]
     Indication: COLORECTAL CANCER METASTATIC
     Route: 048
     Dates: start: 20100526, end: 20100705
  15. HYZAAR [Concomitant]
     Indication: HYPERTENSION
     Dosage: ! D.F:50/12.5MG
     Dates: start: 19850101
  16. ATIVAN [Concomitant]
     Indication: INSOMNIA
     Dates: start: 20070101

REACTIONS (4)
  - METASTASES TO CENTRAL NERVOUS SYSTEM [None]
  - SMALL INTESTINAL OBSTRUCTION [None]
  - THROMBOSIS IN DEVICE [None]
  - MUSCULAR WEAKNESS [None]
